FAERS Safety Report 9335611 (Version 2)
Quarter: 2013Q2

REPORT INFORMATION
  Report Type: Spontaneous
  Country: US (occurrence: US)
  Receive Date: 20130605
  Receipt Date: 20130617
  Transmission Date: 20140414
  Serious: Yes (Other)
  Sender: FDA-Public Use
  Company Number: US-PFIZER INC-2013168949

PATIENT
  Age: 74 Year
  Sex: Female
  Weight: 68.03 kg

DRUGS (7)
  1. LIPITOR [Suspect]
     Indication: BLOOD CHOLESTEROL INCREASED
     Dosage: 10 MG TWO TIMES A DAY
     Route: 048
     Dates: start: 2009
  2. LIPITOR [Suspect]
     Dosage: 10MG DAILY
     Route: 048
     Dates: end: 2011
  3. LIPITOR [Suspect]
     Dosage: 10MG DAILY
     Route: 048
  4. ATENOLOL [Concomitant]
     Indication: HYPERTENSION
     Dosage: 100 MG, 1X/DAY
  5. LASIX [Concomitant]
     Dosage: UNK
  6. HYDROCHLOROTHIAZIDE [Concomitant]
     Dosage: 25 MG, 1X/DAY
  7. ASPIRIN [Concomitant]
     Dosage: 81 MG, 1X/DAY

REACTIONS (3)
  - Breast cancer female [Unknown]
  - Local swelling [Unknown]
  - Expired drug administered [Unknown]
